FAERS Safety Report 5145381-9 (Version None)
Quarter: 2006Q4

REPORT INFORMATION
  Report Type: 
  Country: None (occurrence: None)
  Receive Date: 20061101
  Receipt Date: 20061011
  Transmission Date: 20070319
  Serious: Yes (Life-Threatening, Other)
  Sender: FDA-Public Use
  Company Number: GB200610001988

PATIENT
  Age: 70 Year
  Sex: Female

DRUGS (6)
  1. CYMBALTA [Suspect]
     Indication: DEPRESSION
     Dosage: 60 MG, DAILY (1/D), ORAL
     Route: 048
     Dates: start: 20060401, end: 20060801
  2. OLANZAPINE [Concomitant]
  3. ASPIRIN [Concomitant]
  4. BENDROFLUAZIDE           (BENDROFLUAZIDE) [Concomitant]
  5. CARBAMAZEPINE [Concomitant]
  6. VALSARTAN [Concomitant]

REACTIONS (2)
  - GASTRIC ULCER HAEMORRHAGE [None]
  - GASTRIC ULCER PERFORATION [None]
